FAERS Safety Report 12265113 (Version 2)
Quarter: 2016Q3

REPORT INFORMATION
  Report Type: Spontaneous
  Country: PH (occurrence: PH)
  Receive Date: 20160413
  Receipt Date: 20160722
  Transmission Date: 20161109
  Serious: Yes (Other)
  Sender: FDA-Public Use
  Company Number: PH-GLAXOSMITHKLINE-PH2016GSK047194

PATIENT
  Age: 70 Year
  Sex: Male

DRUGS (4)
  1. TIOTROPIUM [Concomitant]
     Active Substance: TIOTROPIUM
  2. ANORO ELLIPTA [Suspect]
     Active Substance: UMECLIDINIUM BROMIDE\VILANTEROL TRIFENATATE
     Indication: CHRONIC OBSTRUCTIVE PULMONARY DISEASE
     Dosage: 25 ?G, 1D
  3. DOXOFYLLINE [Concomitant]
     Active Substance: DOXOFYLLINE
  4. SERETIDE [Concomitant]
     Active Substance: FLUTICASONE PROPIONATE\SALMETEROL XINAFOATE

REACTIONS (1)
  - Painful respiration [Unknown]
